FAERS Safety Report 25779135 (Version 1)
Quarter: 2025Q3

REPORT INFORMATION
  Report Type: Spontaneous
  Country: US (occurrence: None)
  Receive Date: 20250909
  Receipt Date: 20250909
  Transmission Date: 20251020
  Serious: Yes (Hospitalization)
  Sender: FDA-CTU
  Company Number: None

PATIENT
  Sex: Male

DRUGS (6)
  1. VYNDAMAX [Suspect]
     Active Substance: TAFAMIDIS
     Indication: Acquired ATTR amyloidosis
     Route: 048
     Dates: start: 20210521
  2. CLOPIDOGREL TAB 75MG [Concomitant]
  3. LASIX TAB 20MG [Concomitant]
  4. POTASSIUM GL TAB 550MG [Concomitant]
  5. ROSUVASTATIN [Concomitant]
     Active Substance: ROSUVASTATIN
  6. ZETIA [Concomitant]
     Active Substance: EZETIMIBE

REACTIONS (2)
  - Pneumonia [None]
  - Infection [None]
